FAERS Safety Report 5620334-2 (Version None)
Quarter: 2008Q1

REPORT INFORMATION
  Report Type: 
  Country: None (occurrence: None)
  Receive Date: 20080208
  Receipt Date: 20080130
  Transmission Date: 20080703
  Serious: Yes (Death)
  Sender: FDA-Public Use
  Company Number: IT-ELI_LILLY_AND_COMPANY-IT200801006909

PATIENT
  Age: 35 Year
  Sex: Female

DRUGS (1)
  1. XIGRIS [Suspect]
     Indication: SEPTIC SHOCK
     Dosage: 150 MG/TOTAL
     Route: 042
     Dates: start: 20060326, end: 20060330

REACTIONS (2)
  - DEATH [None]
  - THROMBOCYTOPENIA [None]
